FAERS Safety Report 9619443 (Version 1)
Quarter: 2013Q4

REPORT INFORMATION
  Report Type: Spontaneous
  Country: FR (occurrence: FR)
  Receive Date: 20131014
  Receipt Date: 20131014
  Transmission Date: 20140711
  Serious: Yes (Hospitalization, Other)
  Sender: FDA-Public Use
  Company Number: FR-PFIZER INC-2013282261

PATIENT
  Age: 64 Year
  Sex: Female

DRUGS (10)
  1. IMETH [Suspect]
     Indication: PRODUCT USED FOR UNKNOWN INDICATION
     Dosage: 10 MG, WEEKLY
     Route: 048
     Dates: end: 20130823
  2. EUPANTOL [Suspect]
     Indication: PRODUCT USED FOR UNKNOWN INDICATION
     Dosage: 20 MG, DAILY
     Route: 048
     Dates: start: 20130825, end: 20130901
  3. CEFTRIAXONE SODIUM [Suspect]
     Dosage: 1 G, DAILY
     Dates: start: 201308, end: 201308
  4. GENTAMICIN [Suspect]
     Indication: PYELONEPHRITIS
     Dosage: UNK
     Dates: start: 201308, end: 201308
  5. POLARAMINE [Suspect]
     Dosage: 5 MG, 3X/DAY
     Route: 042
     Dates: start: 20130825, end: 20130830
  6. AOTAL [Concomitant]
     Dosage: 2 DF, 3X/DAY
     Route: 048
  7. BACLOFENE IREX [Concomitant]
     Dosage: 60 MG, DAILY
     Route: 048
  8. TEMERIT [Concomitant]
     Dosage: UNK
     Route: 065
  9. FLECAINE [Concomitant]
     Dosage: 1000 MG, DAILY
     Route: 065
  10. OFLOCET [Concomitant]
     Dosage: UNK
     Dates: start: 20130825

REACTIONS (5)
  - Pancytopenia [Recovered/Resolved]
  - Bacterial pyelonephritis [Unknown]
  - Angioedema [Unknown]
  - Bone marrow disorder [Unknown]
  - Hypoalbuminaemia [Unknown]
